FAERS Safety Report 9938681 (Version 6)
Quarter: 2014Q4

REPORT INFORMATION
  Report Type: Report from Study
  Country: CA (occurrence: CA)
  Receive Date: 20140303
  Receipt Date: 20141224
  Transmission Date: 20150529
  Serious: Yes (Hospitalization)
  Sender: FDA-Public Use
  Company Number: CA-JNJFOC-20140211655

PATIENT
  Age: 61 Year
  Sex: Female
  Weight: 77.1 kg

DRUGS (15)
  1. STELARA [Suspect]
     Active Substance: USTEKINUMAB
     Indication: CROHN^S DISEASE
     Route: 058
  2. METHOTREXATE [Suspect]
     Active Substance: METHOTREXATE
     Indication: PRODUCT USED FOR UNKNOWN INDICATION
     Route: 065
  3. ELAVIL [Suspect]
     Active Substance: AMITRIPTYLINE HYDROCHLORIDE
     Indication: MIGRAINE
     Route: 065
  4. ENTOCORT [Concomitant]
     Active Substance: BUDESONIDE
     Route: 048
     Dates: start: 20131114
  5. VITAMIN D [Concomitant]
     Active Substance: CHOLECALCIFEROL
     Dosage: 200 UI MG
     Route: 048
  6. STELARA [Suspect]
     Active Substance: USTEKINUMAB
     Indication: CROHN^S DISEASE
     Route: 058
     Dates: start: 20140130
  7. CETIRIZINE [Suspect]
     Active Substance: CETIRIZINE HYDROCHLORIDE
     Indication: PRURITUS
     Route: 065
  8. APO-OXAZEPAM [Concomitant]
     Dosage: HS
     Route: 048
  9. ELAVIL [Suspect]
     Active Substance: AMITRIPTYLINE HYDROCHLORIDE
     Indication: MIGRAINE
     Route: 065
  10. PREMARIN [Concomitant]
     Active Substance: ESTROGENS, CONJUGATED
     Dosage: HS
     Route: 048
  11. CETIRIZINE [Suspect]
     Active Substance: CETIRIZINE HYDROCHLORIDE
     Indication: PRURITUS
     Route: 065
  12. CALCIUM [Concomitant]
     Active Substance: CALCIUM
     Route: 048
  13. PANTOLOC [Concomitant]
     Active Substance: PANTOPRAZOLE SODIUM
     Route: 048
  14. PREGABALIN. [Concomitant]
     Active Substance: PREGABALIN
     Dosage: HS
     Route: 048
  15. VITAMIN E [Concomitant]
     Active Substance: .ALPHA.-TOCOPHEROL
     Dosage: 10000 UI
     Route: 048

REACTIONS (7)
  - Dizziness [Unknown]
  - Erythema [Unknown]
  - Product use issue [Unknown]
  - Migraine [Recovering/Resolving]
  - Weight decreased [Unknown]
  - Pruritus [Recovering/Resolving]
  - Faeces soft [Unknown]

NARRATIVE: CASE EVENT DATE: 2014
